FAERS Safety Report 9639255 (Version 14)
Quarter: 2014Q2

REPORT INFORMATION
  Report Type: Report from Study
  Country: CA (occurrence: CA)
  Receive Date: 20131022
  Receipt Date: 20140521
  Transmission Date: 20141212
  Serious: Yes (Other)
  Sender: FDA-Public Use
  Company Number: CA-ROCHE-1266808

PATIENT
  Age: 40 Year
  Sex: Female
  Weight: 72.6 kg

DRUGS (19)
  1. PERJETA [Suspect]
     Indication: BREAST CANCER METASTATIC
     Dosage: LOADING DOSE
     Route: 042
     Dates: start: 20130802
  2. PERJETA [Suspect]
     Dosage: MAINTENACE DOSE
     Route: 042
     Dates: start: 20130802, end: 20140415
  3. HERCEPTIN [Suspect]
     Indication: BREAST CANCER METASTATIC
     Route: 042
     Dates: start: 20130620, end: 2014
  4. TAXOTERE [Suspect]
     Indication: BREAST CANCER
     Route: 042
     Dates: start: 20130620, end: 20130822
  5. TAXOTERE [Suspect]
     Route: 042
     Dates: start: 20130912, end: 201312
  6. DECADRON [Suspect]
     Indication: PRODUCT USED FOR UNKNOWN INDICATION
     Route: 065
  7. LYRICA [Concomitant]
     Route: 065
  8. OXYCODONE [Concomitant]
     Route: 048
  9. PANTOLOC [Concomitant]
     Route: 048
  10. NEULASTA [Concomitant]
     Dosage: DOSE: 6 MG/0.6 ML
     Route: 065
  11. CLONAZEPAM [Concomitant]
     Route: 048
  12. DULCOLAX (BISACODYL) [Concomitant]
  13. NEULASTA [Concomitant]
  14. CLONAZEPAM [Concomitant]
  15. TRIMEBUTINE [Concomitant]
  16. COLACE [Concomitant]
     Dosage: DOSE: 1 - 2 CAPSULES
     Route: 048
  17. XGEVA [Concomitant]
  18. TYLENOL [Concomitant]
  19. CLARITIN [Concomitant]

REACTIONS (38)
  - Respiratory tract irritation [Not Recovered/Not Resolved]
  - Balance disorder [Unknown]
  - Peripheral sensory neuropathy [Unknown]
  - Peripheral motor neuropathy [Not Recovered/Not Resolved]
  - Vaginal infection [Not Recovered/Not Resolved]
  - Urinary tract infection [Not Recovered/Not Resolved]
  - Burning sensation [Not Recovered/Not Resolved]
  - Oedema peripheral [Not Recovered/Not Resolved]
  - Hypoaesthesia [Not Recovered/Not Resolved]
  - Nausea [Recovered/Resolved]
  - Pruritus [Not Recovered/Not Resolved]
  - Dyspnoea [Not Recovered/Not Resolved]
  - Hot flush [Not Recovered/Not Resolved]
  - Epistaxis [Not Recovered/Not Resolved]
  - Constipation [Recovered/Resolved]
  - Dry skin [Not Recovered/Not Resolved]
  - Paraesthesia [Not Recovered/Not Resolved]
  - Mucosal dryness [Not Recovered/Not Resolved]
  - Fatigue [Not Recovered/Not Resolved]
  - Hyperhidrosis [Not Recovered/Not Resolved]
  - Weight increased [Unknown]
  - Myalgia [Unknown]
  - Hypersensitivity [Unknown]
  - Rhinorrhoea [Not Recovered/Not Resolved]
  - Rash [Unknown]
  - Epistaxis [Unknown]
  - Rectal fissure [Unknown]
  - Oedema peripheral [Unknown]
  - Paraesthesia [Not Recovered/Not Resolved]
  - Swelling [Unknown]
  - Weight decreased [Unknown]
  - Chills [Not Recovered/Not Resolved]
  - Rhinorrhoea [Not Recovered/Not Resolved]
  - Insomnia [Not Recovered/Not Resolved]
  - Fluid retention [Not Recovered/Not Resolved]
  - Disease progression [Not Recovered/Not Resolved]
  - Oral herpes [Recovered/Resolved]
  - Immune system disorder [Unknown]
